FAERS Safety Report 6940282-5 (Version None)
Quarter: 2010Q3

REPORT INFORMATION
  Report Type: 
  Country: None (occurrence: None)
  Receive Date: 20100825
  Receipt Date: 20100811
  Transmission Date: 20110219
  Serious: Yes (Hospitalization, Other)
  Sender: FDA-Public Use
  Company Number: PHHY2010MX26343

PATIENT
  Age: 75 Year
  Sex: Male

DRUGS (1)
  1. DIOVAN [Suspect]
     Indication: HYPERTENSION
     Dosage: 1 TABLET (160 MG) DAILY
     Route: 048
     Dates: start: 20060815

REACTIONS (3)
  - TONGUE NEOPLASM MALIGNANT STAGE UNSPECIFIED [None]
  - TONGUE OPERATION [None]
  - TONGUE ULCERATION [None]
